FAERS Safety Report 17413327 (Version 1)
Quarter: 2020Q1

REPORT INFORMATION
  Report Type: Spontaneous
  Country: US (occurrence: US)
  Receive Date: 20200129
  Receipt Date: 20200129
  Transmission Date: 20200409
  Serious: Yes (Hospitalization)
  Sender: FDA-Public Use
  Company Number: None

PATIENT
  Age: 69 Year
  Sex: Male
  Weight: 80 kg

DRUGS (3)
  1. DEXAMETHASONE. [Suspect]
     Active Substance: DEXAMETHASONE
     Dates: end: 20200111
  2. ONDANSETRON HCL (ZOFRAN) [Suspect]
     Active Substance: ONDANSETRON HYDROCHLORIDE
     Dates: end: 20200108
  3. OLANZAPINE. [Suspect]
     Active Substance: OLANZAPINE
     Dates: end: 20200111

REACTIONS (6)
  - Dizziness [None]
  - Urine output decreased [None]
  - Hiccups [None]
  - Blood pressure decreased [None]
  - Asthenia [None]
  - Blood creatinine increased [None]

NARRATIVE: CASE EVENT DATE: 20200122
